FAERS Safety Report 23558779 (Version 1)
Quarter: 2024Q1

REPORT INFORMATION
  Report Type: Spontaneous
  Country: CH (occurrence: CH)
  Receive Date: 20240223
  Receipt Date: 20240223
  Transmission Date: 20240410
  Serious: Yes (Hospitalization, Other)
  Sender: FDA-Public Use
  Company Number: None

PATIENT
  Age: 63 Year
  Sex: Male
  Weight: 74.5 kg

DRUGS (7)
  1. IBUPROFEN [Suspect]
     Active Substance: IBUPROFEN
     Indication: Product used for unknown indication
     Dosage: TIME INTERVAL: AS NECESSARY: DOSE UNKNOWN ; AS NECESSARY
     Route: 065
     Dates: start: 202309, end: 202309
  2. MABTHERA [Suspect]
     Active Substance: RITUXIMAB
     Indication: Multiple sclerosis
     Route: 042
     Dates: start: 201805, end: 20230906
  3. IBUPROFEN [Suspect]
     Active Substance: IBUPROFEN
     Indication: Product used for unknown indication
     Dosage: TIME INTERVAL: AS NECESSARY: DOSE UNKNOWN ; AS NECESSARY
     Route: 048
     Dates: start: 20230911, end: 20230915
  4. TELFASTIN ALLERGO [Concomitant]
     Route: 048
  5. SERETIDE [Concomitant]
     Active Substance: FLUTICASONE PROPIONATE\SALMETEROL XINAFOATE
     Route: 055
  6. PANADOL [Suspect]
     Active Substance: ACETAMINOPHEN
     Indication: Product used for unknown indication
     Dosage: TIME INTERVAL: AS NECESSARY: DOSE UNKNOWN ; AS NECESSARY
     Route: 048
     Dates: start: 20230911, end: 20230915
  7. IMODIUM [Concomitant]
     Active Substance: LOPERAMIDE HYDROCHLORIDE

REACTIONS (6)
  - Neutropenia [Recovered/Resolved]
  - Colitis ulcerative [Recovering/Resolving]
  - Dysuria [Unknown]
  - Pollakiuria [Unknown]
  - Nausea [Unknown]
  - Dysentery [Unknown]

NARRATIVE: CASE EVENT DATE: 20230913
